FAERS Safety Report 5690669-6 (Version None)
Quarter: 2008Q2

REPORT INFORMATION
  Report Type: 
  Country: None (occurrence: None)
  Receive Date: 20080401
  Receipt Date: 20080401
  Transmission Date: 20081010
  Serious: Yes (Hospitalization)
  Sender: FDA-Public Use
  Company Number: JP-BAXTER-2008BH002696

PATIENT
  Age: 23 Year
  Sex: Female
  Weight: 57 kg

DRUGS (4)
  1. EXTRANEAL [Suspect]
     Indication: RENAL FAILURE CHRONIC
     Route: 033
     Dates: start: 20050101
  2. LONGES [Concomitant]
     Indication: PROTEINURIA
     Dosage: DOSE UNIT:UNKNOWN
     Route: 048
     Dates: start: 20010301
  3. CETIRIZINE HCL [Concomitant]
     Indication: HYPERSENSITIVITY
     Dosage: DOSE UNIT:UNKNOWN
     Route: 048
     Dates: start: 20041001
  4. URSO 250 [Concomitant]
     Indication: HEPATIC FUNCTION ABNORMAL
     Dosage: DOSE UNIT:UNKNOWN
     Route: 048
     Dates: start: 19980601

REACTIONS (1)
  - HEPATIC FUNCTION ABNORMAL [None]
